FAERS Safety Report 6011687-4 (Version None)
Quarter: 2008Q4

REPORT INFORMATION
  Report Type: 
  Country: None (occurrence: None)
  Receive Date: 20081218
  Receipt Date: 19870409
  Transmission Date: 20090506
  Serious: Yes (Death, Other)
  Sender: FDA-Public Use
  Company Number: GB-ROCHE-870150545001

PATIENT
  Age: 61 Year
  Sex: Male

DRUGS (2)
  1. INTERFERON ALFA-2A [Suspect]
     Indication: MALIGNANT MELANOMA
     Dosage: CUMULATIVE DOSE: 855 MIU.
     Route: 030
     Dates: start: 19860522, end: 19860925
  2. ETRETINATE [Suspect]
     Indication: MALIGNANT MELANOMA
     Dosage: CUMULATIVE DOSE: 3850 MG.
     Route: 048
     Dates: start: 19860522, end: 19860925

REACTIONS (3)
  - APHASIA [None]
  - ARTHRALGIA [None]
  - MALIGNANT MELANOMA [None]
